FAERS Safety Report 25362477 (Version 1)
Quarter: 2025Q2

REPORT INFORMATION
  Report Type: Spontaneous
  Country: FR (occurrence: FR)
  Receive Date: 20250527
  Receipt Date: 20250527
  Transmission Date: 20250717
  Serious: Yes (Death)
  Sender: SANOFI AVENTIS
  Company Number: FR-DialogSolutions-SAAVPROD-PI773406-C1

PATIENT
  Sex: Female

DRUGS (2)
  1. OXALIPLATIN [Suspect]
     Active Substance: OXALIPLATIN
     Indication: Colon cancer
  2. CAPECITABINE [Suspect]
     Active Substance: CAPECITABINE
     Indication: Colon cancer
     Route: 048

REACTIONS (2)
  - Diarrhoea [Fatal]
  - Electrolyte imbalance [Fatal]
